FAERS Safety Report 19900873 (Version 1)
Quarter: 2021Q3

REPORT INFORMATION
  Report Type: Spontaneous
  Country: US (occurrence: US)
  Receive Date: 20210930
  Receipt Date: 20210930
  Transmission Date: 20211014
  Serious: Yes (Other)
  Sender: FDA-Public Use
  Company Number: None

PATIENT
  Age: 59 Year

DRUGS (1)
  1. REGEN?COV [Suspect]
     Active Substance: CASIRIVIMAB\IMDEVIMAB
     Dates: start: 20210929, end: 20210929

REACTIONS (3)
  - Feeling abnormal [None]
  - Nightmare [None]
  - Tachyphrenia [None]

NARRATIVE: CASE EVENT DATE: 20210929
